FAERS Safety Report 15837276 (Version 4)
Quarter: 2019Q2

REPORT INFORMATION
  Report Type: Spontaneous
  Country: US (occurrence: US)
  Receive Date: 20190117
  Receipt Date: 20190417
  Transmission Date: 20190711
  Serious: Yes (Other)
  Sender: FDA-Public Use
  Company Number: US-009507513-1901USA002410

PATIENT
  Age: 64 Year
  Sex: Female
  Weight: 44 kg

DRUGS (22)
  1. AMANTADINE. [Suspect]
     Active Substance: AMANTADINE HYDROCHLORIDE
     Dosage: 274 MILLIGRAM, 1XDAY AT BEDTIME
     Route: 048
     Dates: start: 20180606, end: 20180610
  2. AMANTADINE. [Suspect]
     Active Substance: AMANTADINE HYDROCHLORIDE
     Dosage: 68.5 MG, 1X/DAY AT BEDTIME
     Route: 048
     Dates: start: 201812
  3. NUPLAZID [Suspect]
     Active Substance: PIMAVANSERIN TARTRATE
     Indication: DELUSION
  4. GABAPENTIN. [Concomitant]
     Active Substance: GABAPENTIN
     Dosage: 100 MG, THREE TIMES DAILY
  5. MINERALS (UNSPECIFIED) (+) VITAMINS (UNSPECIFIED) [Concomitant]
     Active Substance: MINERALS\VITAMINS
     Dosage: TABLET ONCE DAILY
     Route: 048
  6. CLONAZEPAM. [Concomitant]
     Active Substance: CLONAZEPAM
     Dosage: 0.5 MG, THREE TIMES DAILY
     Route: 048
  7. IBUPROFEN. [Concomitant]
     Active Substance: IBUPROFEN
     Dosage: 100 MG/5 ML AT A DOSE OF 200 MG AS NEEDED
     Route: 048
  8. CYANOCOBALAMIN. [Concomitant]
     Active Substance: CYANOCOBALAMIN
     Dosage: 1000 MICROGRAM SUBLINGUAL TABLET OR A 1200 MICROGRAM TABLET
     Route: 048
  9. AMANTADINE. [Concomitant]
     Active Substance: AMANTADINE HYDROCHLORIDE
     Dosage: UNK
     Dates: start: 2011
  10. SINEMET [Suspect]
     Active Substance: CARBIDOPA\LEVODOPA
     Indication: PARKINSON^S DISEASE
     Dosage: 10-100 MILLIGRAM, UNK
     Route: 048
     Dates: start: 2011
  11. AMANTADINE. [Suspect]
     Active Substance: AMANTADINE HYDROCHLORIDE
     Dosage: 68.5 MILLIGRAM ,1X/DAY AT BEDTIME, TAKEN WITH 137 MILLIGRAM CAPSULE
     Route: 048
     Dates: start: 20180611, end: 201807
  12. NUPLAZID [Suspect]
     Active Substance: PIMAVANSERIN TARTRATE
     Indication: HALLUCINATION
     Dosage: 34 MILLIGRAM, 1X/DAY
     Route: 048
     Dates: start: 20181213
  13. MELATONIN [Concomitant]
     Active Substance: MELATONIN
     Dosage: 10 MG, TWICE A DAY, AT BEDTIME
     Route: 048
  14. AMANTADINE. [Suspect]
     Active Substance: AMANTADINE HYDROCHLORIDE
     Dosage: 137 MILLIGRAM,1X/DAY AT BEDTIME, TAKEN WITH 68.5 MILLIGRAM CAPSULE
     Route: 048
     Dates: start: 20180611, end: 201807
  15. AMANTADINE. [Suspect]
     Active Substance: AMANTADINE HYDROCHLORIDE
     Dosage: 205.5 MILLIGRAM (3 CAPSULES), 1X/DAY AT BEDTIME
     Route: 048
     Dates: start: 2018, end: 201812
  16. SINEMET [Suspect]
     Active Substance: CARBIDOPA\LEVODOPA
     Indication: PARKINSON^S DISEASE
     Dosage: 1.5 TABLETS OF 25/100 MG EVERY 1.5 TO 2 HOURS
     Route: 048
  17. ASCORBIC ACID. [Concomitant]
     Active Substance: ASCORBIC ACID
     Dosage: 500 MG ONCE DAILY
     Route: 048
  18. AMANTADINE. [Suspect]
     Active Substance: AMANTADINE HYDROCHLORIDE
     Indication: DYSKINESIA
     Dosage: 205.5 MILLIGRAM (3 CAPSULES), 1X/DAY AT BEDTIME
     Route: 048
     Dates: start: 201805, end: 2018
  19. NUPLAZID [Suspect]
     Active Substance: PIMAVANSERIN TARTRATE
     Indication: PARKINSON^S DISEASE PSYCHOSIS
     Dosage: 34 MILLIGRAM, 1X/DAY
     Route: 048
     Dates: start: 20190103
  20. AZITHROMYCIN ANHYDROUS. [Concomitant]
     Active Substance: AZITHROMYCIN ANHYDROUS
     Dosage: UNK
  21. AMANTADINE. [Suspect]
     Active Substance: AMANTADINE HYDROCHLORIDE
     Indication: DYSKINESIA
     Dosage: 137 MILLIGRAM, 1X/DAY AT BEDTIME
     Route: 048
     Dates: start: 201805, end: 20180605
  22. CALCIUM (UNSPECIFIED) [Concomitant]
     Active Substance: CALCIUM
     Dosage: 600 MILLIGRAM
     Route: 048

REACTIONS (49)
  - Blood calcium decreased [Unknown]
  - Dyskinesia [Recovered/Resolved]
  - Hallucinations, mixed [Not Recovered/Not Resolved]
  - Fatigue [Unknown]
  - Psychomotor hyperactivity [Recovering/Resolving]
  - Transient ischaemic attack [Unknown]
  - Psychomotor hyperactivity [Not Recovered/Not Resolved]
  - Psychomotor hyperactivity [Recovered/Resolved]
  - Dystonia [Recovered/Resolved]
  - Drug ineffective [Unknown]
  - Product administration error [Unknown]
  - Loss of consciousness [Unknown]
  - Distractibility [Recovered/Resolved]
  - Joint injury [Unknown]
  - Cystitis [Unknown]
  - Muscle spasticity [Unknown]
  - Musculoskeletal stiffness [Unknown]
  - Middle insomnia [Unknown]
  - Syncope [Unknown]
  - Nasopharyngitis [Not Recovered/Not Resolved]
  - Fall [Unknown]
  - Insomnia [Recovered/Resolved]
  - Confusional state [Recovered/Resolved]
  - Decreased appetite [Unknown]
  - Radiotherapy [Unknown]
  - Contusion [Recovering/Resolving]
  - Weight fluctuation [Unknown]
  - Immune system disorder [Unknown]
  - Jaw disorder [Unknown]
  - Desmoid tumour [Unknown]
  - Eye irritation [Not Recovered/Not Resolved]
  - Neuralgia [Unknown]
  - Tooth disorder [Unknown]
  - Visual impairment [Unknown]
  - Muscle spasms [Unknown]
  - Dysphagia [Unknown]
  - Dry eye [Not Recovered/Not Resolved]
  - Freezing phenomenon [Unknown]
  - Periarthritis [Unknown]
  - Muscle atrophy [Unknown]
  - Movement disorder [Recovered/Resolved]
  - Balance disorder [Unknown]
  - Gait disturbance [Unknown]
  - Lower respiratory tract infection [Recovered/Resolved]
  - Eye pruritus [Not Recovered/Not Resolved]
  - Head injury [Recovered/Resolved]
  - Sinusitis [Not Recovered/Not Resolved]
  - Urinary tract infection [Unknown]
  - Intentional product misuse [Unknown]

NARRATIVE: CASE EVENT DATE: 2008
